FAERS Safety Report 10383280 (Version 2)
Quarter: 2015Q3

REPORT INFORMATION
  Report Type: Spontaneous
  Country: US (occurrence: US)
  Receive Date: 20140814
  Receipt Date: 20150824
  Transmission Date: 20151125
  Serious: Yes (Hospitalization, Other)
  Sender: FDA-Public Use
  Company Number: US-AMGEN-USASP2014061136

PATIENT
  Age: 57 Year
  Sex: Female

DRUGS (3)
  1. ENBREL [Suspect]
     Active Substance: ETANERCEPT
     Indication: RHEUMATOID ARTHRITIS
     Dosage: 50 MG, QWK
     Route: 065
     Dates: start: 1998, end: 201404
  2. SIMPONI ARIA [Concomitant]
     Active Substance: GOLIMUMAB
     Dosage: UNK
  3. ENBREL [Suspect]
     Active Substance: ETANERCEPT
     Dosage: UNK UNK, Q2WK
     Route: 065

REACTIONS (22)
  - Drug effect decreased [Unknown]
  - Knee arthroplasty [Recovered/Resolved]
  - Weight increased [Unknown]
  - Shoulder operation [Unknown]
  - Joint arthroplasty [Unknown]
  - Drug dose omission [Unknown]
  - Meniscus injury [Recovered/Resolved]
  - Exostosis [Unknown]
  - Intentional product misuse [Unknown]
  - Injection site pain [Recovered/Resolved]
  - Gait disturbance [Unknown]
  - Pain [Unknown]
  - Neurectomy [Unknown]
  - Joint surgery [Unknown]
  - Foot deformity [Unknown]
  - Fatigue [Not Recovered/Not Resolved]
  - Arthritis [Not Recovered/Not Resolved]
  - Musculoskeletal pain [Unknown]
  - Musculoskeletal disorder [Unknown]
  - Asthenia [Not Recovered/Not Resolved]
  - Joint stiffness [Not Recovered/Not Resolved]
  - Rheumatoid nodule removal [Unknown]

NARRATIVE: CASE EVENT DATE: 200108
